FAERS Safety Report 4285359-0 (Version None)
Quarter: 2004Q1

REPORT INFORMATION
  Report Type: 
  Country: None (occurrence: None)
  Receive Date: 20040202
  Receipt Date: 20040122
  Transmission Date: 20041129
  Serious: Yes (Hospitalization, Other)
  Sender: FDA-Public Use
  Company Number: 2003119508

PATIENT
  Age: 31 Year
  Sex: Female
  Weight: 60 kg

DRUGS (11)
  1. NEURONTIN [Suspect]
     Indication: ARTHRALGIA
     Dosage: 900 MG (TID), ORAL
     Route: 048
     Dates: start: 20031010, end: 20031110
  2. NEURONTIN [Suspect]
     Indication: NEUROPATHIC PAIN
     Dosage: 900 MG (TID), ORAL
     Route: 048
     Dates: start: 20031010, end: 20031110
  3. NEURONTIN [Suspect]
     Indication: PATELLOFEMORAL PAIN SYNDROME
     Dosage: 900 MG (TID), ORAL
     Route: 048
     Dates: start: 20031010, end: 20031110
  4. DIAZEPAM [Suspect]
     Indication: MYALGIA
     Dates: start: 20031101
  5. TRAMADOL (TRAMADOL) [Suspect]
     Indication: ILL-DEFINED DISORDER
     Dosage: ORAL
     Route: 048
  6. TEMAZEPAM [Suspect]
     Indication: ILL-DEFINED DISORDER
     Dosage: ORAL
     Route: 048
  7. DIAMORPHINE (DIAMORPHINE) [Concomitant]
  8. ALIMEMAZINE TARTRATE (ALIMEMAZINE TARTRATE) [Concomitant]
  9. INDOMETHACIN [Concomitant]
  10. CODEINE PHOSPHATE AND ACETAMINOPHEN [Concomitant]
  11. FLUOXETINE HCL [Concomitant]

REACTIONS (15)
  - ABNORMAL BEHAVIOUR [None]
  - BACK INJURY [None]
  - CONTUSION [None]
  - DEPRESSED MOOD [None]
  - DIARRHOEA [None]
  - EUPHORIC MOOD [None]
  - FALL [None]
  - FEELING ABNORMAL [None]
  - JUDGEMENT IMPAIRED [None]
  - MOOD ALTERED [None]
  - MUSCLE SPASMS [None]
  - NAUSEA [None]
  - OVERDOSE [None]
  - PAIN [None]
  - SELF-MEDICATION [None]
